FAERS Safety Report 6533215-7 (Version None)
Quarter: 2010Q1

REPORT INFORMATION
  Report Type: 
  Country: None (occurrence: None)
  Receive Date: 20100111
  Receipt Date: 20100104
  Transmission Date: 20100710
  Serious: Yes (Other)
  Sender: FDA-Public Use
  Company Number: US-JNJFOC-20091100520

PATIENT
  Sex: Male
  Weight: 63.5 kg

DRUGS (1)
  1. RISPERDAL [Suspect]
     Indication: DRUG USE FOR UNKNOWN INDICATION
     Route: 048

REACTIONS (5)
  - ACTIVITIES OF DAILY LIVING IMPAIRED [None]
  - APHASIA [None]
  - CATATONIA [None]
  - EATING DISORDER [None]
  - SLEEP DISORDER [None]
